FAERS Safety Report 4370967-9 (Version None)
Quarter: 2004Q2

REPORT INFORMATION
  Report Type: 
  Country: None (occurrence: None)
  Receive Date: 20040601
  Receipt Date: 20040519
  Transmission Date: 20050107
  Serious: Yes (Death)
  Sender: FDA-Public Use
  Company Number: 2004214720JP

PATIENT
  Age: 44 Year
  Sex: Female

DRUGS (7)
  1. ALPRAZOLAM [Suspect]
     Dosage: ORAL
     Route: 048
  2. HALCION [Suspect]
     Dosage: ORAL
     Route: 048
  3. HALOPERIDOL [Suspect]
  4. NOZINAN (LEVOMEPROMAZINE) TABLET [Suspect]
  5. NIFEDIPINE [Suspect]
  6. AKINETON (BIPERIDEN HYDROCHLORIDE, BIPERIDEN HYDROCHLORIDE) TABLET [Suspect]
  7. AMPHETAMINE SULFATE TAB [Concomitant]

REACTIONS (1)
  - MULTIPLE DRUG OVERDOSE [None]
